FAERS Safety Report 10746581 (Version 2)
Quarter: 2015Q4

REPORT INFORMATION
  Report Type: Spontaneous
  Country: JP (occurrence: JP)
  Receive Date: 20150128
  Receipt Date: 20151005
  Transmission Date: 20160304
  Serious: Yes (Life-Threatening, Hospitalization, Other)
  Sender: FDA-Public Use
  Company Number: JP-GSKJP-JP2014JPN041977AA

PATIENT
  Age: 58 Year
  Sex: Female
  Weight: 74 kg

DRUGS (6)
  1. ADALAT [Concomitant]
     Active Substance: NIFEDIPINE
     Dosage: UNK
  2. LOXONIN [Concomitant]
     Active Substance: LOXOPROFEN SODIUM
     Dosage: UNK
  3. CLARITIN REDITABS [Concomitant]
     Active Substance: LORATADINE
     Dosage: UNK
  4. AZILVA [Concomitant]
     Active Substance: AZILSARTAN KAMEDOXOMIL
     Dosage: UNK
  5. VOTRIENT [Suspect]
     Active Substance: PAZOPANIB HYDROCHLORIDE
     Indication: SARCOMA UTERUS
     Dosage: 800 MG, 1D
     Route: 048
     Dates: start: 20141215, end: 20150110
  6. NORVASC [Concomitant]
     Active Substance: AMLODIPINE BESYLATE
     Dosage: UNK

REACTIONS (4)
  - Thrombocytopenia [Recovering/Resolving]
  - Epistaxis [Recovering/Resolving]
  - Tumour necrosis [Unknown]
  - Disseminated intravascular coagulation [Recovered/Resolved]

NARRATIVE: CASE EVENT DATE: 20141229
